FAERS Safety Report 7097459-0 (Version None)
Quarter: 2010Q4

REPORT INFORMATION
  Report Type: 
  Country: None (occurrence: None)
  Receive Date: 20101111
  Receipt Date: 20101104
  Transmission Date: 20110411
  Serious: Yes (Disabling)
  Sender: FDA-Public Use
  Company Number: JP-AMGEN-JPNCT2010004059

PATIENT

DRUGS (18)
  1. PANITUMUMAB [Suspect]
     Indication: COLORECTAL CANCER
     Dosage: 6 MG/KG, Q2WK
     Route: 041
     Dates: start: 20101019, end: 20101019
  2. IRINOTECAN HYDROCHLORIDE [Suspect]
     Indication: COLORECTAL CANCER
     Route: 041
     Dates: start: 20101019
  3. FLUOROURACIL [Suspect]
     Indication: COLORECTAL CANCER
     Route: 041
     Dates: start: 20101019
  4. CALCIUM LEVOFOLINATE [Concomitant]
     Indication: COLORECTAL CANCER
     Route: 041
     Dates: start: 20101019
  5. GRANISETRON HCL [Concomitant]
     Route: 042
  6. DEXART [Concomitant]
     Route: 042
  7. ATROPINE SULFATE [Concomitant]
     Route: 065
  8. WARFARIN [Concomitant]
     Route: 048
  9. 8-HOUR BAYER [Concomitant]
     Route: 048
  10. DAI-KENCHU-TO [Concomitant]
     Route: 048
  11. MAGNESIUM OXIDE [Concomitant]
     Route: 048
  12. JUZEN-TAIHO-TO [Concomitant]
     Route: 048
  13. MUCOSTA [Concomitant]
     Route: 048
  14. RANITIDINE [Concomitant]
     Route: 048
  15. MINOCYCLINE HCL [Concomitant]
     Route: 048
  16. CORTICOSTEROIDS [Concomitant]
     Indication: PROPHYLAXIS
     Route: 065
  17. PRIMPERAN [Concomitant]
     Route: 042
  18. PASTARON LOTION [Concomitant]
     Route: 062

REACTIONS (5)
  - ACNE [None]
  - DRY SKIN [None]
  - NEUROPATHY PERIPHERAL [None]
  - PARONYCHIA [None]
  - STOMATITIS [None]
